FAERS Safety Report 11861148 (Version 2)
Quarter: 2016Q1

REPORT INFORMATION
  Report Type: Other
  Country: US (occurrence: US)
  Receive Date: 20151222
  Receipt Date: 20160108
  Transmission Date: 20160526
  Serious: Yes (Other)
  Sender: FDA-Public Use
  Company Number: US-COL_21641_2015

PATIENT
  Age: 1 Year
  Sex: Female

DRUGS (1)
  1. COLGATE SPARKLING WHITE CINNAMINT FLUORIDE [Suspect]
     Active Substance: SODIUM FLUORIDE
     Indication: PRODUCT USED FOR UNKNOWN INDICATION
     Dosage: NI/ONCE/
     Route: 047
     Dates: start: 20151211, end: 20151211

REACTIONS (8)
  - Seizure [Recovered/Resolved]
  - Exposure via direct contact [Recovered/Resolved]
  - Eye contusion [Recovered/Resolved]
  - Body temperature increased [Recovered/Resolved]
  - Eye irritation [Recovered/Resolved]
  - Eye movement disorder [Recovered/Resolved]
  - Abnormal behaviour [Recovered/Resolved]
  - Accidental exposure to product by child [Recovered/Resolved]

NARRATIVE: CASE EVENT DATE: 20151211
